FAERS Safety Report 23667680 (Version 1)
Quarter: 2024Q1

REPORT INFORMATION
  Report Type: Spontaneous
  Country: BE (occurrence: BE)
  Receive Date: 20240325
  Receipt Date: 20240325
  Transmission Date: 20240410
  Serious: Yes (Other)
  Sender: FDA-Public Use
  Company Number: BE-CHEPLA-2024003675

PATIENT
  Age: 73 Year
  Sex: Male

DRUGS (7)
  1. GANCICLOVIR [Suspect]
     Active Substance: GANCICLOVIR
     Indication: Cytomegalovirus colitis
     Dosage: EVERY 12HOURS, WEIGHT/12 H, WAS INITIATED?DAILY DOSE: 10 MILLIGRAM/KG
  2. GANCICLOVIR [Suspect]
     Active Substance: GANCICLOVIR
     Indication: Cytomegalovirus viraemia
     Dosage: EVERY 12HOURS, WEIGHT/12 H, WAS INITIATED?DAILY DOSE: 10 MILLIGRAM/KG
  3. AZITHROMYCIN [Suspect]
     Active Substance: AZITHROMYCIN
     Indication: Cytomegalovirus viraemia
     Dosage: DAILY DOSE: 500 MILLIGRAM
  4. AZITHROMYCIN [Suspect]
     Active Substance: AZITHROMYCIN
     Indication: Cytomegalovirus colitis
     Dosage: DAILY DOSE: 500 MILLIGRAM
  5. ENFORTUMAB VEDOTIN [Concomitant]
     Active Substance: ENFORTUMAB VEDOTIN
     Dosage: 1.25 MG/KG BODY WEIGHT ON DAY ONE AND EIGHT OF A THREE-WEEKLY REGIMEN
  6. PEMBROLIZUMAB [Concomitant]
     Active Substance: PEMBROLIZUMAB
     Indication: Immune-mediated lung disease
     Dosage: EVERY 3 WEEKS
  7. PREDNISOLONE [Concomitant]
     Active Substance: PREDNISOLONE
     Indication: Immune-mediated lung disease
     Dosage: 1 MG/KG BODY WEIGHT/DAY?DAILY DOSE: 1 MILLIGRAM/KG

REACTIONS (3)
  - Bacterial sepsis [Unknown]
  - Cachexia [Unknown]
  - Device related infection [Unknown]
